FAERS Safety Report 4399334-9 (Version None)
Quarter: 2004Q3

REPORT INFORMATION
  Report Type: 
  Country: None (occurrence: None)
  Receive Date: 20040712
  Receipt Date: 20040630
  Transmission Date: 20050211
  Serious: Yes (Hospitalization, Other)
  Sender: FDA-Public Use
  Company Number: HQWYE901626SEP03

PATIENT
  Age: 79 Year
  Sex: Male

DRUGS (16)
  1. AVLOCARDYL (PROPRANOLOL HYDROCHLORIDE, TABLET) [Suspect]
     Indication: PROPHYLAXIS
     Dosage: SEE IMAGE
     Route: 048
     Dates: start: 20030710, end: 20030805
  2. AVLOCARDYL (PROPRANOLOL HYDROCHLORIDE, TABLET) [Suspect]
     Indication: VARICES OESOPHAGEAL
     Dosage: SEE IMAGE
     Route: 048
     Dates: start: 20030710, end: 20030805
  3. AVLOCARDYL (PROPRANOLOL HYDROCHLORIDE, TABLET) [Suspect]
     Indication: PROPHYLAXIS
     Dosage: SEE IMAGE
     Route: 048
     Dates: start: 20030806, end: 20030901
  4. AVLOCARDYL (PROPRANOLOL HYDROCHLORIDE, TABLET) [Suspect]
     Indication: VARICES OESOPHAGEAL
     Dosage: SEE IMAGE
     Route: 048
     Dates: start: 20030806, end: 20030901
  5. OMEPRAZOLE [Concomitant]
  6. DIGOXIN [Concomitant]
  7. DIGOXIN [Concomitant]
  8. SINTROM [Concomitant]
  9. VITAMIN B1 TAB [Concomitant]
  10. VITAMIN B6 [Concomitant]
  11. NICOTINAMIDE [Concomitant]
  12. FOLIC ACID [Concomitant]
  13. RISPERDAL [Concomitant]
  14. ATHYMIL (MIANSERIN HYDROCHLORIDE) [Concomitant]
  15. VIVALAN (VILOXAZINE HYDROCHLORIDE) [Concomitant]
  16. VALIUM [Concomitant]

REACTIONS (6)
  - AGITATION [None]
  - APHASIA [None]
  - CONFUSIONAL STATE [None]
  - DISORIENTATION [None]
  - HALLUCINATION, VISUAL [None]
  - SOMNOLENCE [None]
